FAERS Safety Report 8624180-7 (Version None)
Quarter: 2012Q3

REPORT INFORMATION
  Report Type: 
  Country: None (occurrence: None)
  Receive Date: 20120827
  Receipt Date: 20120509
  Transmission Date: 20120928
  Serious: No
  Sender: FDA-Public Use
  Company Number: US-VERTEX PHARMACEUTICALS INC.-AE-2012-005939

PATIENT
  Age: 8 Year
  Sex: Female
  Weight: 32.1 kg

DRUGS (6)
  1. PULMOZYME [Concomitant]
  2. PANCREATIC ENZYMES [Concomitant]
  3. SODIUM CHLORIDE CONCENTRATED INJ [Concomitant]
  4. KALYDECO [Suspect]
     Indication: CYSTIC FIBROSIS
     Route: 048
     Dates: start: 20120410
  5. ALBUTEROL [Concomitant]
  6. VYVANSE [Concomitant]
     Indication: ATTENTION DEFICIT/HYPERACTIVITY DISORDER

REACTIONS (1)
  - RHINITIS ALLERGIC [None]
